FAERS Safety Report 8452321-3 (Version None)
Quarter: 2012Q2

REPORT INFORMATION
  Report Type: 
  Country: None (occurrence: None)
  Receive Date: 20120620
  Receipt Date: 20120608
  Transmission Date: 20120825
  Serious: Yes (Hospitalization)
  Sender: FDA-Public Use
  Company Number: US-ELI_LILLY_AND_COMPANY-US201202007641

PATIENT
  Sex: Female

DRUGS (5)
  1. FORTEO [Suspect]
     Dosage: 20 UG, QD
     Route: 065
  2. ACETAMINOPHEN [Concomitant]
     Indication: PAIN
     Dosage: 325 MG, UNK
  3. HYDROCODONE [Concomitant]
     Indication: PAIN
  4. FORTEO [Suspect]
     Indication: OSTEOPOROSIS
     Dosage: 20 UG, QD
     Route: 065
     Dates: start: 20120218
  5. FORTEO [Suspect]
     Dosage: 20 UG, QD

REACTIONS (5)
  - INJECTION SITE DISCOMFORT [None]
  - NAUSEA [None]
  - KNEE ARTHROPLASTY [None]
  - ARTHRALGIA [None]
  - FEELING ABNORMAL [None]
